FAERS Safety Report 21055719 (Version 1)
Quarter: 2022Q3

REPORT INFORMATION
  Report Type: Spontaneous
  Country: US (occurrence: US)
  Receive Date: 20220708
  Receipt Date: 20220708
  Transmission Date: 20221027
  Serious: Yes (Other)
  Sender: FDA-Public Use
  Company Number: US-JNJFOC-20220707979

PATIENT
  Age: 7 Year
  Sex: Male

DRUGS (3)
  1. RISPERDAL [Suspect]
     Active Substance: RISPERIDONE
     Indication: Irritability
     Route: 048
     Dates: start: 20090827
  2. RISPERDAL [Suspect]
     Active Substance: RISPERIDONE
     Indication: Aggression
  3. RISPERIDONE [Suspect]
     Active Substance: RISPERIDONE
     Indication: Product used for unknown indication
     Route: 065

REACTIONS (1)
  - Obesity [Unknown]

NARRATIVE: CASE EVENT DATE: 20110101
